FAERS Safety Report 7320805-7 (Version None)
Quarter: 2011Q1

REPORT INFORMATION
  Report Type: 
  Country: None (occurrence: None)
  Receive Date: 20110221
  Receipt Date: 20110221
  Transmission Date: 20110831
  Serious: No
  Sender: FDA-Public Use
  Company Number: None

PATIENT
  Age: 72 Year
  Sex: Female
  Weight: 58.9676 kg

DRUGS (1)
  1. DEXILANT [Suspect]
     Indication: BARRETT'S OESOPHAGUS
     Dosage: 1 2 PO
     Route: 048
     Dates: start: 20101228, end: 20110221

REACTIONS (1)
  - RASH [None]
